FAERS Safety Report 21944935 (Version 2)
Quarter: 2023Q1

REPORT INFORMATION
  Report Type: Spontaneous
  Country: US (occurrence: US)
  Receive Date: 20230202
  Receipt Date: 20230206
  Transmission Date: 20230418
  Serious: No
  Sender: FDA-Public Use
  Company Number: US-PFIZER INC-202300039768

PATIENT
  Age: 68 Year
  Sex: Female

DRUGS (10)
  1. PAXLOVID [Suspect]
     Active Substance: NIRMATRELVIR\RITONAVIR
     Indication: COVID-19 treatment
     Dosage: UNK
     Dates: start: 20230116, end: 20230121
  2. ROSUVASTATIN [Concomitant]
     Active Substance: ROSUVASTATIN
     Dosage: UNK
     Dates: start: 20230102, end: 20230115
  3. LUPIN [Concomitant]
     Dosage: UNK
     Dates: start: 20230102, end: 20230116
  4. LOSARTAN POTASSIUM [Concomitant]
     Active Substance: LOSARTAN POTASSIUM
     Dosage: UNK
     Dates: start: 20230102, end: 20230116
  5. NOW VITAMIN D3 [Concomitant]
     Dosage: UNK
     Dates: start: 20230102, end: 20230116
  6. ESTRADIOL [Concomitant]
     Active Substance: ESTRADIOL
     Dosage: UNK
     Dates: start: 202301, end: 202301
  7. NOW B12 [Concomitant]
     Dosage: UNK
     Dates: start: 20230102, end: 20230116
  8. NOW D MANNOSE [Concomitant]
     Dosage: UNK
     Dates: start: 20230102, end: 20230116
  9. CARLSON C GEL [Concomitant]
     Dosage: UNK
     Dates: start: 20230102, end: 20230116
  10. CARLSON CAL 600 [Concomitant]
     Dosage: UNK
     Dates: start: 20230102, end: 20230116

REACTIONS (4)
  - Disease recurrence [Recovered/Resolved]
  - COVID-19 [Recovered/Resolved]
  - Sneezing [Recovered/Resolved]
  - Sinus pain [Recovering/Resolving]

NARRATIVE: CASE EVENT DATE: 20230101
